FAERS Safety Report 7223314-9 (Version None)
Quarter: 2011Q1

REPORT INFORMATION
  Report Type: 
  Country: None (occurrence: None)
  Receive Date: 20110112
  Receipt Date: 20100422
  Transmission Date: 20110831
  Serious: No
  Sender: FDA-Public Use
  Company Number: US-ALLERGAN-1005289US

PATIENT
  Age: 76 Year
  Sex: Female

DRUGS (1)
  1. RESTASIS [Suspect]
     Indication: DRY EYE
     Dosage: 1 GTT, BID
     Dates: start: 20100419, end: 20100422

REACTIONS (4)
  - DIZZINESS [None]
  - MALAISE [None]
  - VITREOUS FLOATERS [None]
  - BLOOD GLUCOSE DECREASED [None]
